FAERS Safety Report 20697795 (Version 2)
Quarter: 2022Q3

REPORT INFORMATION
  Report Type: Spontaneous
  Country: CA (occurrence: CA)
  Receive Date: 20220411
  Receipt Date: 20220719
  Transmission Date: 20221027
  Serious: Yes (Other)
  Sender: FDA-Public Use
  Company Number: CA-BAXTER-2022BAX007780

PATIENT
  Age: 51 Year
  Sex: Female

DRUGS (41)
  1. CYCLOPHOSPHAMIDE [Suspect]
     Active Substance: CYCLOPHOSPHAMIDE
     Indication: Progesterone receptor assay negative
     Route: 065
  2. CYCLOPHOSPHAMIDE [Suspect]
     Active Substance: CYCLOPHOSPHAMIDE
     Indication: Oestrogen receptor assay negative
     Route: 065
  3. CYCLOPHOSPHAMIDE [Suspect]
     Active Substance: CYCLOPHOSPHAMIDE
     Indication: HER2 positive breast cancer
     Route: 065
  4. CYCLOPHOSPHAMIDE [Suspect]
     Active Substance: CYCLOPHOSPHAMIDE
     Indication: Breast cancer stage III
     Dosage: DOSAGE FORM: NOT SPECIFIED
     Route: 065
  5. CYCLOPHOSPHAMIDE [Suspect]
     Active Substance: CYCLOPHOSPHAMIDE
     Dosage: DOSAGE FORM: NOT SPECIFIED
     Route: 065
  6. CYCLOPHOSPHAMIDE [Suspect]
     Active Substance: CYCLOPHOSPHAMIDE
     Route: 065
  7. CYCLOPHOSPHAMIDE [Suspect]
     Active Substance: CYCLOPHOSPHAMIDE
     Route: 065
  8. DOCETAXEL [Suspect]
     Active Substance: DOCETAXEL
     Indication: Progesterone receptor assay negative
     Dosage: UNK
     Route: 065
  9. DOCETAXEL [Suspect]
     Active Substance: DOCETAXEL
     Indication: Oestrogen receptor assay negative
     Dosage: UNK
     Route: 065
  10. DOCETAXEL [Suspect]
     Active Substance: DOCETAXEL
     Indication: HER2 positive breast cancer
     Dosage: UNK
     Route: 065
  11. DOCETAXEL [Suspect]
     Active Substance: DOCETAXEL
     Indication: Breast cancer stage III
     Dosage: DOSAGE FORM: NOT SPECIFIED; ROUTE: INTRAVENOUS (NOT OTHERWISE SPECIFIED)
     Route: 042
  12. DOCETAXEL [Suspect]
     Active Substance: DOCETAXEL
     Dosage: UNK
     Route: 065
  13. DOCETAXEL [Suspect]
     Active Substance: DOCETAXEL
     Dosage: UNK
     Route: 065
  14. DOCETAXEL [Suspect]
     Active Substance: DOCETAXEL
     Dosage: UNK
     Route: 065
  15. EPIRUBICIN HYDROCHLORIDE [Suspect]
     Active Substance: EPIRUBICIN HYDROCHLORIDE
     Indication: Progesterone receptor assay negative
     Dosage: 100 MG/M2
     Route: 065
  16. EPIRUBICIN HYDROCHLORIDE [Suspect]
     Active Substance: EPIRUBICIN HYDROCHLORIDE
     Indication: Oestrogen receptor assay negative
     Dosage: UNK
     Route: 065
  17. EPIRUBICIN HYDROCHLORIDE [Suspect]
     Active Substance: EPIRUBICIN HYDROCHLORIDE
     Indication: HER2 positive breast cancer
     Dosage: UNK
     Route: 065
  18. EPIRUBICIN HYDROCHLORIDE [Suspect]
     Active Substance: EPIRUBICIN HYDROCHLORIDE
     Indication: Breast cancer stage III
     Dosage: UNK
     Route: 065
  19. EPIRUBICIN HYDROCHLORIDE [Suspect]
     Active Substance: EPIRUBICIN HYDROCHLORIDE
     Dosage: UNK
     Route: 065
  20. EPIRUBICIN HYDROCHLORIDE [Suspect]
     Active Substance: EPIRUBICIN HYDROCHLORIDE
     Dosage: UNK
     Route: 065
  21. EPIRUBICIN HYDROCHLORIDE [Suspect]
     Active Substance: EPIRUBICIN HYDROCHLORIDE
     Dosage: UNK
     Route: 065
  22. EPIRUBICIN HYDROCHLORIDE [Suspect]
     Active Substance: EPIRUBICIN HYDROCHLORIDE
     Dosage: UNK
     Route: 065
  23. FLUOROURACIL [Suspect]
     Active Substance: FLUOROURACIL
     Indication: Progesterone receptor assay negative
     Dosage: UNK
     Route: 065
  24. FLUOROURACIL [Suspect]
     Active Substance: FLUOROURACIL
     Indication: Oestrogen receptor assay negative
     Dosage: UNK
     Route: 065
  25. FLUOROURACIL [Suspect]
     Active Substance: FLUOROURACIL
     Indication: HER2 positive breast cancer
     Dosage: UNK
     Route: 065
  26. FLUOROURACIL [Suspect]
     Active Substance: FLUOROURACIL
     Indication: Breast cancer stage III
     Dosage: DOSAGE FORM: NOT SPECIFIED
     Route: 065
  27. EPIRUBICIN HYDROCHLORIDE [Suspect]
     Active Substance: EPIRUBICIN HYDROCHLORIDE
     Indication: Progesterone receptor assay negative
     Dosage: ROUTE:INTRAVENOUS (NOT OTHERWISE SPECIFIED)
     Route: 042
  28. EPIRUBICIN HYDROCHLORIDE [Suspect]
     Active Substance: EPIRUBICIN HYDROCHLORIDE
     Indication: Oestrogen receptor assay negative
     Dosage: UNK
     Route: 065
  29. EPIRUBICIN HYDROCHLORIDE [Suspect]
     Active Substance: EPIRUBICIN HYDROCHLORIDE
     Indication: HER2 positive breast cancer
     Dosage: DOSAGE FORM: SOLUTION INTRAVENOUS
     Route: 065
  30. EPIRUBICIN HYDROCHLORIDE [Suspect]
     Active Substance: EPIRUBICIN HYDROCHLORIDE
     Indication: Breast cancer stage III
     Dosage: UNK
     Route: 065
  31. EPIRUBICIN HYDROCHLORIDE [Suspect]
     Active Substance: EPIRUBICIN HYDROCHLORIDE
     Dosage: UNK
     Route: 065
  32. TRASTUZUMAB [Suspect]
     Active Substance: TRASTUZUMAB
     Indication: Progesterone receptor assay negative
     Dosage: UNK
     Route: 065
  33. TRASTUZUMAB [Suspect]
     Active Substance: TRASTUZUMAB
     Indication: Oestrogen receptor assay negative
     Dosage: UNK
     Route: 065
  34. TRASTUZUMAB [Suspect]
     Active Substance: TRASTUZUMAB
     Indication: HER2 positive breast cancer
     Dosage: UNK
     Route: 065
  35. TRASTUZUMAB [Suspect]
     Active Substance: TRASTUZUMAB
     Indication: Breast cancer stage III
     Dosage: UNK
     Route: 065
  36. RAMIPRIL [Suspect]
     Active Substance: RAMIPRIL
     Indication: Cardiac failure congestive
     Dosage: DOSAGE FORM: NOT SPECIFIED
     Route: 065
  37. EFUDEX [Suspect]
     Active Substance: FLUOROURACIL
     Indication: Progesterone receptor assay negative
     Dosage: UNK
     Route: 065
  38. EFUDEX [Suspect]
     Active Substance: FLUOROURACIL
     Indication: Oestrogen receptor assay negative
  39. EFUDEX [Suspect]
     Active Substance: FLUOROURACIL
     Indication: HER2 positive breast cancer
  40. EFUDEX [Suspect]
     Active Substance: FLUOROURACIL
     Indication: Breast cancer stage III
  41. ALTACE [Suspect]
     Active Substance: RAMIPRIL
     Indication: Cardiac failure congestive
     Dosage: DOSAGE FORM: CAPSULES
     Route: 065

REACTIONS (2)
  - Drug intolerance [Unknown]
  - Cardiac failure congestive [Unknown]
